FAERS Safety Report 8029745-1 (Version None)
Quarter: 2012Q1

REPORT INFORMATION
  Report Type: 
  Country: None (occurrence: None)
  Receive Date: 20120109
  Receipt Date: 20111230
  Transmission Date: 20120608
  Serious: Yes (Hospitalization)
  Sender: FDA-Public Use
  Company Number: US-BAYER-2012-001409

PATIENT
  Age: 25 Year
  Sex: Female
  Weight: 63.492 kg

DRUGS (5)
  1. METHADONE HCL [Concomitant]
  2. WELLBUTRIN [Concomitant]
  3. FLUOXETINE [Concomitant]
  4. YAZ [Suspect]
     Dosage: UNK
     Dates: start: 20090601, end: 20100128
  5. TRAZODONE HCL [Concomitant]

REACTIONS (1)
  - PULMONARY EMBOLISM [None]
